FAERS Safety Report 8153454-1 (Version None)
Quarter: 2012Q1

REPORT INFORMATION
  Report Type: 
  Country: None (occurrence: None)
  Receive Date: 20120221
  Receipt Date: 20120214
  Transmission Date: 20120608
  Serious: Yes (Life-Threatening)
  Sender: FDA-Public Use
  Company Number: FR-ROCHE-1040185

PATIENT
  Age: 80 Year
  Sex: Male

DRUGS (8)
  1. HYDROCORTISONE [Concomitant]
     Indication: MYOCARDIAL INFARCTION
  2. HEPARIN [Concomitant]
     Indication: MYOCARDIAL INFARCTION
  3. ROCEPHIN [Suspect]
     Indication: INFECTION
     Dates: start: 20111221, end: 20111223
  4. CLAFORAN [Concomitant]
  5. AMIODARONE HCL [Concomitant]
     Indication: MYOCARDIAL INFARCTION
  6. ASPIRIN [Concomitant]
     Indication: MYOCARDIAL INFARCTION
  7. FUROSEMIDE [Concomitant]
     Indication: MYOCARDIAL INFARCTION
  8. DOBUTAMINE HCL [Concomitant]
     Indication: MYOCARDIAL INFARCTION

REACTIONS (1)
  - PANCREATITIS ACUTE [None]
